FAERS Safety Report 4855650-5 (Version None)
Quarter: 2005Q4

REPORT INFORMATION
  Report Type: 
  Country: None (occurrence: None)
  Receive Date: 20051216
  Receipt Date: 20051118
  Transmission Date: 20060501
  Serious: Yes (Other)
  Sender: FDA-Public Use
  Company Number: GBWYE157121NOV05

PATIENT
  Sex: Male
  Weight: 60 kg

DRUGS (9)
  1. ENBREL [Suspect]
     Indication: DRUG USE FOR UNKNOWN INDICATION
     Route: 058
     Dates: start: 20050713, end: 20051020
  2. CIMETIDINE [Concomitant]
     Indication: GASTROINTESTINAL DISORDER
     Route: 048
  3. ASPIRIN [Concomitant]
     Indication: MYOCARDIAL INFARCTION
     Route: 048
  4. SIMVASTATIN [Concomitant]
     Indication: HYPERLIPIDAEMIA
     Route: 048
  5. ATENOLOL [Concomitant]
     Indication: HYPERTENSION
     Route: 048
  6. CO-PROXAMOL [Concomitant]
     Indication: PAIN
     Dosage: 1 TABLET AS REQUIRED
     Route: 048
  7. FOLIC ACID [Concomitant]
     Route: 048
     Dates: start: 20020821
  8. HYDROXYCHLOROQUINE SULFATE [Concomitant]
     Indication: RHEUMATOID ARTHRITIS
     Route: 048
     Dates: start: 20041103
  9. METHOTREXATE [Concomitant]
     Dates: start: 20020821

REACTIONS (2)
  - PLEURAL EFFUSION [None]
  - VASCULITIS [None]
